FAERS Safety Report 4588888-5 (Version None)
Quarter: 2005Q1

REPORT INFORMATION
  Report Type: 
  Country: None (occurrence: None)
  Receive Date: 20050216
  Receipt Date: 20050202
  Transmission Date: 20050727
  Serious: Yes (Hospitalization)
  Sender: FDA-Public Use
  Company Number: 2005BI001118

PATIENT
  Age: 25 Year
  Sex: Male

DRUGS (1)
  1. NATALIZUMAB [Suspect]
     Indication: MULTIPLE SCLEROSIS
     Dosage: QM; IV
     Route: 042
     Dates: start: 20041201

REACTIONS (4)
  - CONVULSION [None]
  - FACE OEDEMA [None]
  - RASH [None]
  - SWOLLEN TONGUE [None]
